FAERS Safety Report 8173767-7 (Version None)
Quarter: 2012Q1

REPORT INFORMATION
  Report Type: 
  Country: None (occurrence: None)
  Receive Date: 20120229
  Receipt Date: 20120222
  Transmission Date: 20120608
  Serious: Yes (Life-Threatening, Other)
  Sender: FDA-Public Use
  Company Number: JP-ASTRAZENECA-2012SE13254

PATIENT
  Age: 72 Year
  Sex: Female

DRUGS (2)
  1. XYLOCAINE [Suspect]
     Indication: BRONCHOSCOPY
     Route: 049
  2. XYLOCAINE [Suspect]
     Indication: BRONCHOSCOPY
     Route: 049

REACTIONS (6)
  - HEART RATE DECREASED [None]
  - OVERDOSE [None]
  - COLD SWEAT [None]
  - VENTRICULAR TACHYCARDIA [None]
  - BLOOD PRESSURE DECREASED [None]
  - UNRESPONSIVE TO STIMULI [None]
